FAERS Safety Report 19744128 (Version 1)
Quarter: 2021Q3

REPORT INFORMATION
  Report Type: Spontaneous
  Country: US (occurrence: US)
  Receive Date: 20210824
  Receipt Date: 20210824
  Transmission Date: 20211014
  Serious: No
  Sender: FDA-Public Use
  Company Number: US-BAUSCH-BL-2021-027231

PATIENT
  Age: 73 Year
  Sex: Female

DRUGS (1)
  1. METRONIDAZOLE VAGINAL GEL [Suspect]
     Active Substance: METRONIDAZOLE
     Indication: BACTERIAL VULVOVAGINITIS
     Route: 067
     Dates: start: 20210730, end: 20210731

REACTIONS (1)
  - Vaginal haemorrhage [Recovered/Resolved]

NARRATIVE: CASE EVENT DATE: 20210730
